FAERS Safety Report 7205477-4 (Version None)
Quarter: 2010Q4

REPORT INFORMATION
  Report Type: 
  Country: None (occurrence: None)
  Receive Date: 20101231
  Receipt Date: 20101229
  Transmission Date: 20110411
  Serious: Yes (Death)
  Sender: FDA-Public Use
  Company Number: PHHY2010CA89208

PATIENT
  Sex: Male

DRUGS (2)
  1. CLOZARIL [Suspect]
     Dosage: 6.25 MG
     Dates: start: 20101208
  2. CLOZARIL [Suspect]
     Dosage: 12.5 MG

REACTIONS (1)
  - DEATH [None]
